FAERS Safety Report 17826255 (Version 1)
Quarter: 2020Q2

REPORT INFORMATION
  Report Type: Report from Study
  Country: US (occurrence: US)
  Receive Date: 20200526
  Receipt Date: 20200526
  Transmission Date: 20200714
  Serious: Yes (Death, Hospitalization)
  Sender: FDA-Public Use
  Company Number: US-SA-2020SA097433

PATIENT
  Age: 67 Year
  Sex: Female

DRUGS (16)
  1. EPINEPHRINE. [Concomitant]
     Active Substance: EPINEPHRINE
     Indication: HYPOTENSION
     Dosage: 16 UNK, UNK
     Dates: start: 20200410, end: 20200411
  2. NOREPINEPHRINE. [Concomitant]
     Active Substance: NOREPINEPHRINE
     Indication: HYPOTENSION
     Dosage: 8 MG
     Dates: start: 20200402, end: 20200411
  3. ZOSYN [Concomitant]
     Active Substance: PIPERACILLIN SODIUM\TAZOBACTAM SODIUM
     Indication: PNEUMONIA VIRAL
     Dosage: 3.375 G
     Dates: start: 20200331, end: 20200401
  4. DOXYCYCLINE. [Concomitant]
     Active Substance: DOXYCYCLINE
     Indication: PNEUMONIA
     Dosage: 100 MG, BID
     Dates: start: 20200325, end: 20200328
  5. HYDROXYCHLOROQUINE [Concomitant]
     Active Substance: HYDROXYCHLOROQUINE
     Indication: CORONAVIRUS INFECTION
     Dosage: 400 MG
     Dates: start: 20200324, end: 20200328
  6. CEFTRIAXONE. [Concomitant]
     Active Substance: CEFTRIAXONE
     Indication: PNEUMONIA VIRAL
     Dosage: 1000 MG, QD
     Dates: start: 20200323, end: 20200325
  7. VANCOMYCIN [Concomitant]
     Active Substance: VANCOMYCIN
     Indication: PNEUMONIA VIRAL
     Dosage: 1250 MG, QD
     Dates: start: 20200331, end: 20200401
  8. TYLENOL [Concomitant]
     Active Substance: ACETAMINOPHEN
     Indication: PYREXIA
  9. AZITHROMYCIN ANHYDROUS. [Concomitant]
     Active Substance: AZITHROMYCIN ANHYDROUS
     Dosage: 650 MG, PRN
  10. HYDROXYCHLOROQUINE [Concomitant]
     Active Substance: HYDROXYCHLOROQUINE
     Dosage: 200 UNK
  11. ZOSYN [Concomitant]
     Active Substance: PIPERACILLIN SODIUM\TAZOBACTAM SODIUM
     Dosage: 3.375 G
     Dates: start: 20200403, end: 20200410
  12. AZITHROMYCIN ANHYDROUS. [Concomitant]
     Active Substance: AZITHROMYCIN ANHYDROUS
     Indication: CORONAVIRUS INFECTION
     Dosage: 500 MG, QD
     Dates: start: 20200323, end: 20200323
  13. ACETAMINOPHEN. [Concomitant]
     Active Substance: ACETAMINOPHEN
     Indication: PYREXIA
     Dosage: 650 MG, PRN
     Dates: start: 20200323, end: 20200327
  14. SARILUMAB [Suspect]
     Active Substance: SARILUMAB
     Indication: CORONAVIRUS INFECTION
     Dosage: 200 MG, 1X
     Route: 042
     Dates: start: 20200326, end: 20200326
  15. VANCOMYCIN [Concomitant]
     Active Substance: VANCOMYCIN
     Dosage: 1000 MG, QD
     Dates: start: 20200408, end: 20200408
  16. MIDODRINE [Concomitant]
     Active Substance: MIDODRINE
     Indication: HYPOTENSION
     Dosage: 5 G, TID
     Dates: start: 20200327, end: 20200328

REACTIONS (4)
  - Hypotension [Unknown]
  - Pulmonary embolism [Unknown]
  - Coronavirus infection [Fatal]
  - Candida infection [Unknown]

NARRATIVE: CASE EVENT DATE: 20200327
